FAERS Safety Report 25451616 (Version 1)
Quarter: 2025Q2

REPORT INFORMATION
  Report Type: Spontaneous
  Country: US (occurrence: US)
  Receive Date: 20250618
  Receipt Date: 20250618
  Transmission Date: 20250717
  Serious: Yes (Congenital Anomaly)
  Sender: PFIZER
  Company Number: US-PFIZER INC-202500122897

PATIENT

DRUGS (1)
  1. NURTEC ODT [Suspect]
     Active Substance: RIMEGEPANT SULFATE
     Indication: Migraine
     Route: 064

REACTIONS (2)
  - Maternal exposure during pregnancy [Unknown]
  - Cleft lip [Unknown]
